FAERS Safety Report 12926514 (Version 1)
Quarter: 2016Q4

REPORT INFORMATION
  Report Type: Spontaneous
  Country: UY (occurrence: UY)
  Receive Date: 20161109
  Receipt Date: 20161109
  Transmission Date: 20170207
  Serious: Yes (Death, Hospitalization)
  Sender: FDA-Public Use
  Company Number: UY-BIOMARINAP-UY-2016-111705

PATIENT
  Age: 19 Year
  Sex: Male
  Weight: 45.9 kg

DRUGS (1)
  1. ALDURAZYME [Suspect]
     Active Substance: LARONIDASE
     Indication: MUCOPOLYSACCHARIDOSIS I
     Dosage: 0.58 MG/KG, QW
     Route: 041
     Dates: start: 20100622, end: 20101024

REACTIONS (1)
  - Infection [Fatal]

NARRATIVE: CASE EVENT DATE: 20161026
